FAERS Safety Report 5385954-1 (Version None)
Quarter: 2007Q3

REPORT INFORMATION
  Report Type: 
  Country: None (occurrence: None)
  Receive Date: 20070712
  Receipt Date: 20070711
  Transmission Date: 20080115
  Serious: Yes (Hospitalization, Other)
  Sender: FDA-Public Use
  Company Number: BE-MERCK-0707BEL00004

PATIENT
  Age: 67 Year
  Sex: Male

DRUGS (8)
  1. COZAAR [Suspect]
     Indication: HYPERTENSION
     Route: 048
  2. AMLODIPINE BESYLATE [Concomitant]
     Indication: CARDIOVASCULAR DISORDER
     Route: 048
  3. ASPIRIN [Concomitant]
     Indication: CARDIOVASCULAR DISORDER
     Route: 048
  4. ALLOPURINOL [Concomitant]
     Indication: GOUT
     Route: 048
  5. MOXONIDINE [Concomitant]
     Indication: CARDIOVASCULAR DISORDER
     Route: 048
  6. REPAGLINIDE [Concomitant]
     Indication: DIABETES MELLITUS
     Route: 048
  7. INSULIN HUMAN, ISOPHANE [Concomitant]
     Indication: DIABETES MELLITUS
     Route: 058
  8. METOPROLOL TARTRATE [Concomitant]
     Indication: CARDIOVASCULAR DISORDER
     Route: 048

REACTIONS (1)
  - CORONARY ARTERY DISEASE [None]
